FAERS Safety Report 5232999-8 (Version None)
Quarter: 2007Q1

REPORT INFORMATION
  Report Type: 
  Country: None (occurrence: None)
  Receive Date: 20061204
  Receipt Date: 20060829
  Transmission Date: 20070707
  Serious: No
  Sender: FDA-Public Use
  Company Number: 2006-BP-08828BP

PATIENT
  Age: 59 Year
  Sex: Female

DRUGS (10)
  1. SPIRIVA [Suspect]
     Indication: ASTHMA
     Dosage: 18 MCG (18 MCG),IH
     Route: 055
     Dates: start: 20060718
  2. SPIRIVA [Suspect]
     Indication: GASTROOESOPHAGEAL REFLUX DISEASE
     Dosage: 18 MCG (18 MCG),IH
     Route: 055
     Dates: start: 20060718
  3. PREDNISONE TAB [Concomitant]
  4. ADVAIR (SERETIDE /01420901/) [Concomitant]
  5. ALLEGRA [Concomitant]
  6. PREVACID [Concomitant]
  7. ALBUTEROL [Concomitant]
  8. MULTIVITAMIN (MULTIVITAMIN /00831701/) [Concomitant]
  9. CALCIUM (CALCIUM) [Concomitant]
  10. FISH OIL (FISH OIL) [Concomitant]

REACTIONS (4)
  - ABDOMINAL PAIN UPPER [None]
  - ERUCTATION [None]
  - MUSCLE SPASMS [None]
  - SINUSITIS [None]
